FAERS Safety Report 25396741 (Version 1)
Quarter: 2025Q2

REPORT INFORMATION
  Report Type: Report from Study
  Country: CA (occurrence: CA)
  Receive Date: 20250604
  Receipt Date: 20250604
  Transmission Date: 20250716
  Serious: Yes (Hospitalization, Other)
  Sender: SANDOZ
  Company Number: CA-002147023-NVSC2022CA115099

PATIENT
  Age: 34 Year
  Sex: Female

DRUGS (1)
  1. HYRIMOZ [Suspect]
     Active Substance: ADALIMUMAB-ADAZ
     Indication: Ankylosing spondylitis
     Dosage: 40 MG, Q2W, PRE-FILLED PENS
     Route: 058
     Dates: start: 20220503

REACTIONS (10)
  - Lymphadenopathy [Unknown]
  - Pharyngitis [Unknown]
  - General physical health deterioration [Unknown]
  - Neck pain [Unknown]
  - Discomfort [Unknown]
  - Fatigue [Unknown]
  - Back pain [Unknown]
  - Arthralgia [Unknown]
  - Musculoskeletal stiffness [Unknown]
  - Ankylosing spondylitis [Unknown]

NARRATIVE: CASE EVENT DATE: 20220513
